FAERS Safety Report 10011889 (Version 2)
Quarter: 2014Q1

REPORT INFORMATION
  Report Type: Report from Study
  Country: JP (occurrence: JP)
  Receive Date: 20140314
  Receipt Date: 20140314
  Transmission Date: 20141002
  Serious: Yes (Death, Hospitalization, Other)
  Sender: FDA-Public Use
  Company Number: JP-SA-THYM-1003861

PATIENT
  Age: 56 Year
  Sex: Male
  Weight: 57 kg

DRUGS (17)
  1. THYMOGLOBULIN [Suspect]
     Indication: BONE MARROW CONDITIONING REGIMEN
     Dosage: 125 MG, QD
     Route: 065
     Dates: start: 20120521, end: 20120521
  2. PHENOL [Concomitant]
     Indication: HAEMORRHOIDS
     Dosage: UNK
     Route: 065
     Dates: start: 20120305, end: 20120821
  3. TEICOPLANIN [Concomitant]
     Indication: PROPHYLAXIS
     Dosage: UNK
     Route: 065
     Dates: start: 20120809, end: 20120817
  4. BAKTAR [Concomitant]
     Indication: PROPHYLAXIS
     Dosage: UNK
     Route: 065
     Dates: start: 20120201, end: 20120818
  5. TACROLIMUS [Concomitant]
     Indication: PROPHYLAXIS
     Dosage: UNK
     Route: 065
     Dates: start: 20120528, end: 20120808
  6. FINIBAX [Concomitant]
     Indication: PROPHYLAXIS
     Dosage: UNK
     Route: 042
     Dates: start: 20120528, end: 20120611
  7. CHLORPHENAMINE MALEATE [Concomitant]
     Indication: PROPHYLAXIS
     Dosage: UNK
     Route: 065
     Dates: start: 20120520, end: 20120520
  8. GANCICLOVIR [Concomitant]
     Indication: PROPHYLAXIS
     Dosage: UNK
     Route: 042
     Dates: start: 20120711, end: 20120725
  9. UROKINASE [Concomitant]
     Dosage: UNK
     Route: 042
     Dates: start: 20120606, end: 20120606
  10. VANCOMYCIN [Concomitant]
     Indication: PROPHYLAXIS
     Dosage: UNK
     Route: 065
     Dates: start: 20120514, end: 20120529
  11. METHYLPREDNISOLONE SODIUM SUCCINATE [Concomitant]
     Indication: PROPHYLAXIS
     Dosage: UNK
     Route: 065
     Dates: start: 20120523, end: 20120606
  12. MORPHINE HYDROCHLORIDE [Concomitant]
     Indication: HEPATITIS B CORE ANTIBODY POSITIVE
     Dosage: UNK
     Route: 065
     Dates: start: 20120611, end: 20120821
  13. MORPHINE HYDROCHLORIDE [Concomitant]
     Indication: INGUINAL HERNIA
     Dosage: UNK
     Route: 065
     Dates: start: 20120611, end: 20120821
  14. MORPHINE HYDROCHLORIDE [Concomitant]
     Indication: HEPATITIS B SURFACE ANTIBODY POSITIVE
     Dosage: UNK
     Route: 065
     Dates: start: 20120611, end: 20120821
  15. MORPHINE HYDROCHLORIDE [Concomitant]
     Indication: NON-HODGKIN^S LYMPHOMA
     Dosage: UNK
     Route: 065
     Dates: start: 20120611, end: 20120821
  16. MORPHINE HYDROCHLORIDE [Concomitant]
     Indication: HAEMORRHOIDS
     Dosage: UNK
     Route: 065
     Dates: start: 20120611, end: 20120821
  17. MORPHINE HYDROCHLORIDE [Concomitant]
     Indication: SOCIAL PROBLEM
     Dosage: UNK
     Route: 065
     Dates: start: 20120611, end: 20120821

REACTIONS (11)
  - Acute graft versus host disease in skin [Unknown]
  - Cystitis haemorrhagic [Not Recovered/Not Resolved]
  - Splenic rupture [Not Recovered/Not Resolved]
  - Post transplant lymphoproliferative disorder [Fatal]
  - Sepsis [Not Recovered/Not Resolved]
  - Cytomegalovirus enterocolitis [Not Recovered/Not Resolved]
  - Pyrexia [Recovered/Resolved]
  - Abscess fungal [Unknown]
  - Haemosiderosis [Not Recovered/Not Resolved]
  - Gastric ulcer [Not Recovered/Not Resolved]
  - Pyrexia [Not Recovered/Not Resolved]
